FAERS Safety Report 5717851-3 (Version None)
Quarter: 2008Q2

REPORT INFORMATION
  Report Type: 
  Country: None (occurrence: None)
  Receive Date: 20080425
  Receipt Date: 20080414
  Transmission Date: 20081010
  Serious: Yes (Hospitalization)
  Sender: FDA-Public Use
  Company Number: GB-JNJFOC-20080403789

PATIENT
  Age: 59 Year
  Sex: Male

DRUGS (1)
  1. OFLOXACIN [Suspect]
     Indication: PROSTATITIS
     Route: 065

REACTIONS (1)
  - VENTRICULAR TACHYCARDIA [None]
